FAERS Safety Report 5006804-9 (Version None)
Quarter: 2006Q2

REPORT INFORMATION
  Report Type: 
  Country: None (occurrence: None)
  Receive Date: 20060516
  Receipt Date: 20060508
  Transmission Date: 20061013
  Serious: Yes (Other)
  Sender: FDA-Public Use
  Company Number: CAP06000114

PATIENT
  Age: 82 Year
  Sex: Female

DRUGS (13)
  1. DIDROCAL [Suspect]
     Indication: OSTEOPOROSIS
     Dosage: 1 TABLET ONCE DAILY, ORAL
     Route: 048
  2. COUMADIN [Suspect]
     Indication: PROPHYLAXIS
     Dosage: SEE IMAGE
     Dates: start: 20051001, end: 20060212
  3. COUMADIN [Suspect]
     Indication: PROPHYLAXIS
     Dosage: SEE IMAGE
     Dates: start: 20060213, end: 20060504
  4. COUMADIN [Suspect]
     Indication: PROPHYLAXIS
     Dosage: SEE IMAGE
     Dates: start: 20060505
  5. LIPITOR [Concomitant]
  6. NOVOSPIROZINE     (SPIRONOLACTONE, HYDROCHLOROTHIAZIDE) [Concomitant]
  7. APO-LEVOCARB          (LEVODOPA, CARBIDOPA) [Concomitant]
  8. RABEPRAZOLE SODIUM [Concomitant]
  9. ALTACE [Concomitant]
  10. NOVOPUROL (ALLOPURINOL) [Concomitant]
  11. CODEINE (CODEINE) [Concomitant]
  12. ACETAMINOPHEN [Concomitant]
  13. REACTINE (CETIRIZINE HYDROCHLORIDE) [Concomitant]

REACTIONS (5)
  - CEREBROVASCULAR ACCIDENT [None]
  - INTERNATIONAL NORMALISED RATIO DECREASED [None]
  - INTERNATIONAL NORMALISED RATIO INCREASED [None]
  - MYOCARDIAL INFARCTION [None]
  - PHARMACEUTICAL PRODUCT COMPLAINT [None]
